FAERS Safety Report 5603988-6 (Version None)
Quarter: 2008Q1

REPORT INFORMATION
  Report Type: 
  Country: None (occurrence: None)
  Receive Date: 20080123
  Receipt Date: 20080123
  Transmission Date: 20080703
  Serious: Yes (Hospitalization, Disabling)
  Sender: FDA-Public Use
  Company Number: None

PATIENT
  Age: 87 Year
  Sex: Female
  Weight: 79 kg

DRUGS (14)
  1. TRIMETHOPRIM + SULFAMETHOXAZOLE [Suspect]
     Indication: URINARY TRACT INFECTION
     Dosage: 160/800MG 1 PO
     Route: 048
     Dates: start: 20070628, end: 20071019
  2. WARFARIN SODIUM [Concomitant]
  3. FUROSEMIDE [Concomitant]
  4. ASPIRIN [Concomitant]
  5. ACETAMINOPHEN [Concomitant]
  6. PROMETHAZINE [Concomitant]
  7. LATANOPROST [Concomitant]
  8. POTASSIUM CHLORIDE [Concomitant]
  9. MONOPRIL [Concomitant]
  10. EZETEMIBE/SIMVASTATIN [Concomitant]
  11. DONEPEZIL HCL [Concomitant]
  12. LEVOTHYROXINE SODIUM [Concomitant]
  13. GEMFIBROZIL [Concomitant]
  14. SERTRALINE [Concomitant]

REACTIONS (4)
  - HYPERKALAEMIA [None]
  - METABOLIC ACIDOSIS [None]
  - PAIN [None]
  - RENAL FAILURE ACUTE [None]
